FAERS Safety Report 5142401-2 (Version None)
Quarter: 2006Q4

REPORT INFORMATION
  Report Type: 
  Country: None (occurrence: None)
  Receive Date: 20061102
  Receipt Date: 20061003
  Transmission Date: 20070319
  Serious: Yes (Death, Other)
  Sender: FDA-Public Use
  Company Number: CA-BRISTOL-MYERS SQUIBB COMPANY-13529813

PATIENT
  Age: 77 Year
  Sex: Male

DRUGS (7)
  1. DASATINIB [Suspect]
     Indication: LEUKAEMIA
     Route: 048
     Dates: start: 20060316, end: 20060905
  2. VINCRISTINE [Concomitant]
     Dates: start: 20060905, end: 20060905
  3. ALLOPURINOL [Concomitant]
     Dates: start: 20060901
  4. CIPROFLOXACIN [Concomitant]
     Dates: start: 20060801
  5. DOXORUBICIN HCL [Concomitant]
     Dates: start: 20060905
  6. DEXAMETHASONE TAB [Concomitant]
     Dates: start: 20060905
  7. METHOTREXATE [Concomitant]
     Dates: start: 20060905

REACTIONS (4)
  - COLITIS ISCHAEMIC [None]
  - FAECALOMA [None]
  - GASTROINTESTINAL HAEMORRHAGE [None]
  - INTESTINAL ISCHAEMIA [None]
